FAERS Safety Report 14795088 (Version 4)
Quarter: 2018Q2

REPORT INFORMATION
  Report Type: Spontaneous
  Country: US (occurrence: US)
  Receive Date: 20180423
  Receipt Date: 20180629
  Transmission Date: 20180711
  Serious: Yes (Other)
  Sender: FDA-Public Use
  Company Number: US-ELI_LILLY_AND_COMPANY-US201804009485

PATIENT
  Age: 53 Year
  Sex: Female

DRUGS (4)
  1. METFORMIN [Concomitant]
     Active Substance: METFORMIN HYDROCHLORIDE
     Indication: TYPE 2 DIABETES MELLITUS
     Dosage: 100 MG, BID
  2. TRULICITY [Suspect]
     Active Substance: DULAGLUTIDE
     Indication: TYPE 2 DIABETES MELLITUS
     Dosage: 1.5 MG, UNKNOWN
     Route: 065
     Dates: start: 201802
  3. LANTUS [Concomitant]
     Active Substance: INSULIN GLARGINE
     Indication: PRODUCT USED FOR UNKNOWN INDICATION
  4. TRULICITY [Suspect]
     Active Substance: DULAGLUTIDE
     Dosage: 1.5 MG, UNKNOWN
     Route: 065

REACTIONS (18)
  - Ill-defined disorder [Recovered/Resolved]
  - Injection site pain [Unknown]
  - Fatigue [Unknown]
  - Decreased appetite [Unknown]
  - Injection site rash [Unknown]
  - Musculoskeletal disorder [Recovered/Resolved]
  - Dizziness [Unknown]
  - Weight decreased [Not Recovered/Not Resolved]
  - Feeling abnormal [Unknown]
  - Mobility decreased [Unknown]
  - Hypersomnia [Recovered/Resolved]
  - Arthralgia [Not Recovered/Not Resolved]
  - Injection site erythema [Unknown]
  - Lethargy [Unknown]
  - General physical health deterioration [Unknown]
  - Asthenia [Unknown]
  - Nausea [Recovered/Resolved]
  - Injection site pruritus [Unknown]

NARRATIVE: CASE EVENT DATE: 201804
